FAERS Safety Report 5673183-3 (Version None)
Quarter: 2008Q1

REPORT INFORMATION
  Report Type: 
  Country: None (occurrence: None)
  Receive Date: 20080319
  Receipt Date: 20080312
  Transmission Date: 20080703
  Serious: Yes (Other)
  Sender: FDA-Public Use
  Company Number: ZA-ROCHE-553081

PATIENT
  Sex: Female

DRUGS (1)
  1. TORADOL [Suspect]
     Dosage: GIVEN SLOWLY.
     Route: 042
     Dates: start: 20080310, end: 20080310

REACTIONS (5)
  - BLOOD PRESSURE INCREASED [None]
  - COLD SWEAT [None]
  - LOSS OF CONSCIOUSNESS [None]
  - NAUSEA [None]
  - OXYGEN SATURATION DECREASED [None]
